FAERS Safety Report 21104955 (Version 2)
Quarter: 2022Q3

REPORT INFORMATION
  Report Type: Spontaneous
  Country: US (occurrence: US)
  Receive Date: 20220720
  Receipt Date: 20220825
  Transmission Date: 20221027
  Serious: Yes (Disabling, Other)
  Sender: FDA-Public Use
  Company Number: US-REGENERON PHARMACEUTICALS, INC.-2022-092878

PATIENT
  Sex: Male

DRUGS (6)
  1. EYLEA [Suspect]
     Active Substance: AFLIBERCEPT
     Indication: Retinal vein occlusion
     Dosage: 2 MG, EVERY 4-6 WEEKS INTO LEFT EYE (STRENGTH: 2MG/0.05ML)
     Dates: start: 20220305, end: 20220305
  2. EYLEA [Suspect]
     Active Substance: AFLIBERCEPT
     Indication: Macular oedema
     Dosage: 2 MG, EVERY 4-6 WEEKS INTO LEFT EYE (STRENGTH: 2MG/0.05ML)
     Dates: start: 20220402, end: 20220402
  3. EYLEA [Suspect]
     Active Substance: AFLIBERCEPT
     Dosage: 2 MG, EVERY 4-6 WEEKS INTO LEFT EYE (STRENGTH: 2MG/0.05ML)
     Dates: start: 20220505, end: 20220505
  4. COUMADIN [Concomitant]
     Active Substance: WARFARIN SODIUM
     Indication: Product used for unknown indication
     Route: 048
  5. METFORMIN HYDROCHLORIDE [Concomitant]
     Active Substance: METFORMIN HYDROCHLORIDE
     Indication: Product used for unknown indication
     Route: 048
  6. METOPROLOL TARTRATE [Concomitant]
     Active Substance: METOPROLOL TARTRATE
     Indication: Product used for unknown indication
     Dosage: UNK; METOPROLOL TARTRATE 25 MG (METOPROLOL SUCCINATE 23.75 MG)
     Route: 048

REACTIONS (8)
  - Blindness unilateral [Not Recovered/Not Resolved]
  - Optic disc haemorrhage [Unknown]
  - Retinal artery occlusion [Unknown]
  - Cataract nuclear [Unknown]
  - Vitreous detachment [Unknown]
  - Visual acuity reduced [Unknown]
  - Vitreous floaters [Unknown]
  - Vision blurred [Unknown]

NARRATIVE: CASE EVENT DATE: 20220101
